FAERS Safety Report 4906005-6 (Version None)
Quarter: 2006Q1

REPORT INFORMATION
  Report Type: 
  Country: None (occurrence: None)
  Receive Date: 20060206
  Receipt Date: 20060126
  Transmission Date: 20060701
  Serious: Yes (Other)
  Sender: FDA-Public Use
  Company Number: 2006012836

PATIENT
  Age: 2 Year
  Sex: Male
  Weight: 17.6903 kg

DRUGS (1)
  1. BENADRYL [Suspect]
     Indication: NASAL CONGESTION
     Dosage: LESS THAN 1/2 TEASPOON
     Dates: start: 20060123, end: 20060123

REACTIONS (2)
  - HALLUCINATION, VISUAL [None]
  - INSOMNIA [None]
